FAERS Safety Report 18890123 (Version 2)
Quarter: 2021Q1

REPORT INFORMATION
  Report Type: Spontaneous
  Country: US (occurrence: US)
  Receive Date: 20210214
  Receipt Date: 20210317
  Transmission Date: 20210420
  Serious: No
  Sender: FDA-Public Use
  Company Number: US-ASTRAZENECA-2021A023667

PATIENT
  Age: 22522 Day
  Sex: Female
  Weight: 76.2 kg

DRUGS (3)
  1. BYDUREON BCISE [Suspect]
     Active Substance: EXENATIDE
     Indication: TYPE 2 DIABETES MELLITUS
     Route: 058
     Dates: start: 202012
  2. ATORVASTATIN [Concomitant]
     Active Substance: ATORVASTATIN
  3. GLIMEPIRIDE. [Concomitant]
     Active Substance: GLIMEPIRIDE

REACTIONS (4)
  - Injection site haemorrhage [Unknown]
  - Intentional device misuse [Unknown]
  - Device malfunction [Unknown]
  - Wrong technique in device usage process [Unknown]

NARRATIVE: CASE EVENT DATE: 20210127
